FAERS Safety Report 21967190 (Version 2)
Quarter: 2023Q2

REPORT INFORMATION
  Report Type: Report from Study
  Country: US (occurrence: US)
  Receive Date: 20230208
  Receipt Date: 20230414
  Transmission Date: 20230722
  Serious: Yes (Other)
  Sender: FDA-Public Use
  Company Number: US-ABBVIE-4299525

PATIENT
  Sex: Female

DRUGS (1)
  1. HUMIRA [Suspect]
     Active Substance: ADALIMUMAB
     Indication: Rheumatoid arthritis
     Route: 058

REACTIONS (10)
  - Sepsis [Unknown]
  - Rheumatoid arthritis [Unknown]
  - Hip fracture [Unknown]
  - Adverse reaction [Unknown]
  - Bone pain [Unknown]
  - Visual impairment [Unknown]
  - Diabetes mellitus [Unknown]
  - Device use error [Not Recovered/Not Resolved]
  - Device issue [Not Recovered/Not Resolved]
  - Peripheral swelling [Unknown]
